FAERS Safety Report 7622730-0 (Version None)
Quarter: 2011Q3

REPORT INFORMATION
  Report Type: 
  Country: None (occurrence: None)
  Receive Date: 20110719
  Receipt Date: 20110719
  Transmission Date: 20111222
  Serious: Yes (Life-Threatening, Disabling)
  Sender: FDA-Public Use
  Company Number: None

PATIENT
  Sex: Female
  Weight: 72.5755 kg

DRUGS (2)
  1. ALVIMOPAN 12MG ENTEREG [Suspect]
     Indication: POSTOPERATIVE ILEUS
     Dosage: 12MG BID PO
     Route: 048
     Dates: start: 20110607, end: 20110609
  2. ALVIMOPAN 12MG ENTEREG [Suspect]
     Indication: PROPHYLAXIS
     Dosage: 12MG BID PO
     Route: 048
     Dates: start: 20110607, end: 20110609

REACTIONS (3)
  - SMALL INTESTINAL OBSTRUCTION [None]
  - SURGICAL PROCEDURE REPEATED [None]
  - INTESTINAL INFARCTION [None]
